FAERS Safety Report 6150980-1 (Version None)
Quarter: 2009Q2

REPORT INFORMATION
  Report Type: 
  Country: None (occurrence: None)
  Receive Date: 20090410
  Receipt Date: 20090119
  Transmission Date: 20091009
  Serious: No
  Sender: FDA-Public Use
  Company Number: A0761063A

PATIENT
  Sex: Female

DRUGS (1)
  1. TYKERB [Suspect]
     Indication: DRUG USE FOR UNKNOWN INDICATION
     Route: 048
     Dates: start: 20081023, end: 20080101

REACTIONS (4)
  - ADVERSE EVENT [None]
  - NAUSEA [None]
  - PRODUCT QUALITY ISSUE [None]
  - VOMITING [None]
